FAERS Safety Report 18666848 (Version 3)
Quarter: 2021Q3

REPORT INFORMATION
  Report Type: Report from Study
  Country: US (occurrence: US)
  Receive Date: 20201227
  Receipt Date: 20210910
  Transmission Date: 20211014
  Serious: No
  Sender: FDA-Public Use
  Company Number: NVSC2020US334354

PATIENT
  Sex: Female

DRUGS (1)
  1. KESIMPTA [Suspect]
     Active Substance: OFATUMUMAB
     Indication: RELAPSING MULTIPLE SCLEROSIS
     Dosage: 20 MG, QMO
     Route: 058
     Dates: start: 20201207

REACTIONS (4)
  - Feeling abnormal [Unknown]
  - Headache [Recovered/Resolved]
  - Somnolence [Unknown]
  - Migraine [Unknown]

NARRATIVE: CASE EVENT DATE: 20201208
